FAERS Safety Report 7872542-8 (Version None)
Quarter: 2011Q4

REPORT INFORMATION
  Report Type: 
  Country: None (occurrence: None)
  Receive Date: 20111030
  Receipt Date: 20110428
  Transmission Date: 20120403
  Serious: No
  Sender: FDA-Public Use
  Company Number: US-AMGEN-USASP2011022209

PATIENT
  Sex: Female

DRUGS (3)
  1. ENBREL [Suspect]
     Indication: RHEUMATOID ARTHRITIS
     Dosage: 50 MG, QWK
     Dates: start: 20110407
  2. METHOTREXATE [Concomitant]
     Dates: start: 20090101
  3. PLAQUENIL [Concomitant]
     Dates: start: 20110201

REACTIONS (2)
  - DRUG INEFFECTIVE [None]
  - FATIGUE [None]
